FAERS Safety Report 20125207 (Version 1)
Quarter: 2021Q4

REPORT INFORMATION
  Report Type: Spontaneous
  Country: US (occurrence: US)
  Receive Date: 20211129
  Receipt Date: 20211129
  Transmission Date: 20220303
  Serious: No
  Sender: FDA-Public Use
  Company Number: US-BIOGEN-2021BI01066274

PATIENT
  Sex: Female

DRUGS (2)
  1. TECFIDERA [Suspect]
     Active Substance: DIMETHYL FUMARATE
     Indication: Multiple sclerosis
     Route: 048
     Dates: start: 20160129, end: 20180113
  2. TECFIDERA [Suspect]
     Active Substance: DIMETHYL FUMARATE
     Route: 065

REACTIONS (5)
  - Meniere^s disease [Not Recovered/Not Resolved]
  - Multiple sclerosis [Unknown]
  - Viral load increased [Unknown]
  - Flushing [Recovered/Resolved]
  - Pruritus [Recovered/Resolved]
